FAERS Safety Report 5065107-7 (Version None)
Quarter: 2006Q3

REPORT INFORMATION
  Report Type: 
  Country: None (occurrence: None)
  Receive Date: 20060727
  Receipt Date: 20060727
  Transmission Date: 20061208
  Serious: Yes (Hospitalization)
  Sender: FDA-Public Use
  Company Number: None

PATIENT
  Age: 69 Year
  Sex: Male
  Weight: 69.4003 kg

DRUGS (6)
  1. MIDAZOLAM HYDROCHLORIDE [Suspect]
     Indication: SEDATION
     Dosage: 2 MG IV OTO
     Route: 042
     Dates: start: 20060306
  2. MEPERIDINE HCL [Suspect]
     Indication: SEDATION
     Dosage: 50 MG IV OTO
     Route: 042
     Dates: start: 20060306
  3. COUMADIN [Concomitant]
  4. MONOPRIL [Concomitant]
  5. LIPITOR [Concomitant]
  6. HYTRIN [Concomitant]

REACTIONS (5)
  - ATRIOVENTRICULAR BLOCK [None]
  - BLOOD PRESSURE DECREASED [None]
  - BRADYCARDIA [None]
  - PROCEDURAL COMPLICATION [None]
  - SYNCOPE VASOVAGAL [None]
